FAERS Safety Report 25600448 (Version 1)
Quarter: 2025Q3

REPORT INFORMATION
  Report Type: Spontaneous
  Country: EU (occurrence: EU)
  Receive Date: 20250724
  Receipt Date: 20250724
  Transmission Date: 20251021
  Serious: Yes (Life-Threatening)
  Sender: TEVA
  Company Number: None

PATIENT
  Age: 60 Year
  Sex: Female
  Weight: 69 kg

DRUGS (2)
  1. PAZOPANIB [Suspect]
     Active Substance: PAZOPANIB
     Indication: Sarcoma metastatic
     Route: 048
     Dates: start: 20250404, end: 20250616
  2. DOXORUBICIN [Concomitant]
     Active Substance: DOXORUBICIN
     Indication: Benign phyllodes breast tumour
     Route: 042
     Dates: start: 20250301

REACTIONS (2)
  - Cardiac failure [Recovered/Resolved with Sequelae]
  - Sudden cardiac death [Recovered/Resolved with Sequelae]

NARRATIVE: CASE EVENT DATE: 20250616
